FAERS Safety Report 4400706-4 (Version None)
Quarter: 2004Q3

REPORT INFORMATION
  Report Type: 
  Country: None (occurrence: None)
  Receive Date: 20040714
  Receipt Date: 20040705
  Transmission Date: 20050211
  Serious: Yes (Life-Threatening)
  Sender: FDA-Public Use
  Company Number: D01200402466

PATIENT
  Age: 66 Year
  Sex: Female

DRUGS (10)
  1. (FONDAPARINUX) - SOLUTION - UNIT DOSE : UNKNOWN [Suspect]
     Indication: MYOCARDIAL INFARCTION
     Dosage: 2.5 MG QD  SUBCUTANEOUS
     Route: 058
     Dates: start: 20040119, end: 20040119
  2. ASPIRIN [Concomitant]
  3. AMIODARONE HCL [Concomitant]
  4. NITRATE [Concomitant]
  5. METOPROLOL [Concomitant]
  6. SIMVASTATIN [Concomitant]
  7. TICLOPIDINE HCL [Concomitant]
  8. INSULIN [Concomitant]
  9. METAZIDIN [Concomitant]
  10. CILASAPRIL(CILAZAPRIL) [Concomitant]

REACTIONS (3)
  - CATHETER RELATED COMPLICATION [None]
  - CORONARY ARTERY THROMBOSIS [None]
  - THROMBOSIS [None]
